FAERS Safety Report 9639058 (Version 2)
Quarter: 2013Q4

REPORT INFORMATION
  Report Type: Spontaneous
  Country: DE (occurrence: DE)
  Receive Date: 20131022
  Receipt Date: 20131022
  Transmission Date: 20140711
  Serious: Yes (Hospitalization, Other)
  Sender: FDA-Public Use
  Company Number: DE-UCBSA-8051584

PATIENT
  Age: 43 Year
  Sex: Female

DRUGS (4)
  1. KEPPRA [Suspect]
     Dosage: 1500 - 0 - 2000
     Dates: start: 2002
  2. KEPPRA [Suspect]
     Dosage: 1500 - 0 - 3000
  3. RISPERDAL [Concomitant]
     Dates: start: 2005
  4. RISPERDAL [Concomitant]
     Dosage: 4 - 0 - 2

REACTIONS (6)
  - Psychotic disorder [Unknown]
  - Intentional self-injury [Recovering/Resolving]
  - Epileptic aura [Recovered/Resolved]
  - Tremor [Unknown]
  - Irritability [Unknown]
  - Overdose [Unknown]
